FAERS Safety Report 9967172 (Version 1)
Quarter: 2014Q1

REPORT INFORMATION
  Report Type: Report from Study
  Country: PR (occurrence: PR)
  Receive Date: 20140305
  Receipt Date: 20140305
  Transmission Date: 20141002
  Serious: No
  Sender: FDA-Public Use
  Company Number: PR-ABBVIE-13P-131-1139893-00

PATIENT
  Sex: Female
  Weight: 54.48 kg

DRUGS (15)
  1. HUMIRA [Suspect]
     Indication: RHEUMATOID ARTHRITIS
     Dates: start: 2007, end: 201308
  2. HUMIRA [Suspect]
     Indication: RHEUMATOID ARTHRITIS
     Dates: start: 20130822
  3. SYNTHROID [Concomitant]
     Indication: PRODUCT USED FOR UNKNOWN INDICATION
     Route: 048
  4. PANTOPRAZOLE [Concomitant]
     Indication: GASTROOESOPHAGEAL REFLUX DISEASE
     Route: 048
  5. GABAPENTIN [Concomitant]
     Indication: FACIAL PAIN
  6. BYSTOLIC [Concomitant]
     Indication: HYPERTENSION
     Route: 048
  7. CLONAZEPLHAN [Concomitant]
     Indication: FACIAL NERVE DISORDER
     Route: 048
  8. FOLIC ACID [Concomitant]
     Indication: VITAMIN SUPPLEMENTATION
     Route: 048
  9. TRAMADOL AND ACETAMINOPHEN [Concomitant]
     Indication: PRODUCT USED FOR UNKNOWN INDICATION
     Route: 048
  10. TRAVATAN [Concomitant]
     Indication: GLAUCOMA
     Dosage: 1 DROP EACH EYE
  11. CENTRUM SILVER [Concomitant]
     Indication: VITAMIN SUPPLEMENTATION
     Route: 048
  12. CALTRATE + D [Concomitant]
     Indication: MINERAL SUPPLEMENTATION
     Route: 048
  13. MAXIMUM D3 [Concomitant]
     Indication: VITAMIN SUPPLEMENTATION
     Route: 048
  14. OMEGA 3 [Concomitant]
     Indication: NUTRITIONAL SUPPLEMENTATION
  15. METOPROLOL [Concomitant]
     Indication: HYPERTENSION
     Route: 048

REACTIONS (1)
  - Injection site pain [Unknown]
